FAERS Safety Report 7817237-1 (Version None)
Quarter: 2011Q4

REPORT INFORMATION
  Report Type: 
  Country: None (occurrence: None)
  Receive Date: 20111017
  Receipt Date: 20111013
  Transmission Date: 20120403
  Serious: Yes (Death)
  Sender: FDA-Public Use
  Company Number: PHFR2011IE01639

PATIENT
  Sex: Male

DRUGS (6)
  1. AMISULPRIDE [Suspect]
     Indication: SCHIZOAFFECTIVE DISORDER
     Dosage: 400 MG, DAILY AND 200 MG, NOCTE
     Dates: start: 20050101
  2. CLOZARIL [Suspect]
     Indication: SCHIZOPHRENIA
     Dosage: 350 MG, BID
     Route: 048
     Dates: start: 20040719, end: 20100701
  3. VENLAFAXINE [Concomitant]
     Indication: DEPRESSION
     Dosage: 150 MG, NOCTE AND 37.5 MG, DAILY
     Dates: start: 20080101
  4. VALPROATE SODIUM [Concomitant]
     Indication: MOOD ALTERED
     Dosage: 500 MG, TID
     Dates: start: 20050101
  5. NITRAZEPAM [Concomitant]
     Dosage: 10 MG, NOCTE
     Dates: start: 20080101
  6. CLOZARIL [Suspect]
     Dosage: 325 MG, MANE AND 350 MG, NOCTE
     Route: 048
     Dates: start: 20100722

REACTIONS (1)
  - DEATH [None]
